FAERS Safety Report 5862224-6 (Version None)
Quarter: 2008Q3

REPORT INFORMATION
  Report Type: 
  Country: None (occurrence: None)
  Receive Date: 20080828
  Receipt Date: 20080814
  Transmission Date: 20090109
  Serious: Yes (Life-Threatening, Hospitalization, Other)
  Sender: FDA-Public Use
  Company Number: US-BAYER-200824088NA

PATIENT
  Age: 66 Year
  Sex: Male
  Weight: 78 kg

DRUGS (30)
  1. LEUKINE [Suspect]
     Indication: CORD BLOOD TRANSPLANT THERAPY
     Dosage: TOTAL DAILY DOSE: 500 ?G  UNIT DOSE: 250 ?G/M2
     Route: 058
     Dates: start: 20070512, end: 20070610
  2. FLUDARABINE [Suspect]
     Indication: BONE MARROW CONDITIONING REGIMEN
     Dosage: TOTAL DAILY DOSE: 59 MG
     Route: 042
     Dates: start: 20070428, end: 20070501
  3. BUSULFAN [Suspect]
     Indication: BONE MARROW CONDITIONING REGIMEN
     Dosage: AS USED: 60 MG
     Route: 042
     Dates: start: 20070501, end: 20070502
  4. THYMOGLOBULIN [Suspect]
     Indication: BONE MARROW CONDITIONING REGIMEN
     Dosage: TOTAL DAILY DOSE: 200 MG
     Route: 042
     Dates: start: 20070502, end: 20070504
  5. TACROLIMUS [Concomitant]
     Indication: PROPHYLAXIS AGAINST GRAFT VERSUS HOST DISEASE
     Dosage: TOTAL DAILY DOSE: 2 MG
     Route: 048
     Dates: start: 20070527, end: 20070706
  6. TACROLIMUS [Concomitant]
     Dosage: TOTAL DAILY DOSE: 0.5 MG
     Route: 048
     Dates: start: 20080703
  7. TACROLIMUS [Concomitant]
     Dosage: TOTAL DAILY DOSE: 1.4 MG
     Route: 048
     Dates: start: 20070509, end: 20070524
  8. TACROLIMUS [Concomitant]
     Dosage: TOTAL DAILY DOSE: 1.2 MG
     Route: 048
     Dates: start: 20070507, end: 20070509
  9. TACROLIMUS [Concomitant]
     Dosage: TOTAL DAILY DOSE: 3.0 MG
     Route: 048
     Dates: start: 20070524, end: 20070527
  10. TACROLIMUS [Concomitant]
     Dosage: TOTAL DAILY DOSE: 1.0 MG
     Route: 048
     Dates: start: 20070706, end: 20080703
  11. TACROLIMUS [Concomitant]
     Dosage: TOTAL DAILY DOSE: 1.6 MG
     Route: 048
     Dates: start: 20070503, end: 20070507
  12. VORICONAZOLE [Concomitant]
     Indication: INFECTION PROPHYLAXIS
     Dosage: TOTAL DAILY DOSE: 600 MG
     Route: 048
     Dates: start: 20070503
  13. SEPTRA [Concomitant]
  14. VALTREX [Concomitant]
     Dosage: TOTAL DAILY DOSE: 500 MG
     Route: 048
  15. MOXIFLOXACIN HCL [Concomitant]
     Indication: INFECTION PROPHYLAXIS
     Dosage: TOTAL DAILY DOSE: 400 MG
     Route: 048
     Dates: start: 20070503, end: 20070530
  16. MYCOPHENOLATE MOFETIL [Concomitant]
     Indication: PROPHYLAXIS AGAINST GRAFT VERSUS HOST DISEASE
     Dosage: TOTAL DAILY DOSE: 2500 MG
     Route: 048
     Dates: start: 20070608, end: 20070615
  17. MYCOPHENOLATE MOFETIL [Concomitant]
     Dosage: TOTAL DAILY DOSE: 1500 MG
     Route: 048
     Dates: start: 20070605, end: 20070606
  18. MYCOPHENOLATE MOFETIL [Concomitant]
     Dosage: TOTAL DAILY DOSE: 1000 MG
     Route: 048
     Dates: start: 20070528, end: 20070605
  19. MYCOPHENOLATE MOFETIL [Concomitant]
     Dosage: TOTAL DAILY DOSE: 2000 MG
     Route: 048
     Dates: start: 20070606, end: 20070608
  20. MYCOPHENOLATE MOFETIL [Concomitant]
     Dosage: TOTAL DAILY DOSE: 2500 MG
     Route: 048
     Dates: start: 20070506, end: 20070528
  21. SEPTRA DS [Concomitant]
     Indication: INFECTION PROPHYLAXIS
     Dosage: TOTAL DAILY DOSE: 160 MG
     Dates: start: 20070622
  22. SEPTRA DS [Concomitant]
     Dosage: TOTAL DAILY DOSE: 160 MG
     Dates: start: 20070428, end: 20070503
  23. ACYCLOVIR [Concomitant]
     Indication: INFECTION PROPHYLAXIS
  24. DAPSONE [Concomitant]
     Indication: INFECTION PROPHYLAXIS
     Dosage: TOTAL DAILY DOSE: 100 MG
     Dates: start: 20070501, end: 20070504
  25. CEFEPIME [Concomitant]
     Indication: INFECTION PROPHYLAXIS
     Dosage: TOTAL DAILY DOSE: 8 G
     Dates: start: 20070530, end: 20070607
  26. VANCOMYCIN HYDROCHLORIDE [Concomitant]
     Indication: INFECTION PROPHYLAXIS
     Dosage: TOTAL DAILY DOSE: 2 G
     Dates: start: 20070530, end: 20070601
  27. GABAPENTIN [Concomitant]
     Dosage: TOTAL DAILY DOSE: 1200 MG
     Dates: start: 20070507
  28. NORVASC [Concomitant]
     Dosage: TOTAL DAILY DOSE: 5 MG
  29. METFORMIN HCL [Concomitant]
     Dosage: TOTAL DAILY DOSE: 500 MG
  30. HYDROCORTISONE [Concomitant]
     Route: 061

REACTIONS (3)
  - ACUTE MYELOID LEUKAEMIA RECURRENT [None]
  - IDIOPATHIC THROMBOCYTOPENIC PURPURA [None]
  - MYELODYSPLASTIC SYNDROME [None]
